FAERS Safety Report 4903324-4 (Version None)
Quarter: 2006Q1

REPORT INFORMATION
  Report Type: 
  Country: None (occurrence: None)
  Receive Date: 20060206
  Receipt Date: 20060206
  Transmission Date: 20060701
  Serious: Yes (Hospitalization, Disabling, Other)
  Sender: FDA-Public Use
  Company Number: None

PATIENT
  Age: 22 Year
  Sex: Male
  Weight: 68.0396 kg

DRUGS (2)
  1. VERSED [Suspect]
     Indication: CONVULSION
     Dates: start: 20050111, end: 20050111
  2. VERSED [Suspect]
     Indication: HEAD INJURY
     Dates: start: 20050111, end: 20050111

REACTIONS (6)
  - CONVULSION [None]
  - INJURY [None]
  - MOANING [None]
  - POOR QUALITY DRUG ADMINISTERED [None]
  - RESTLESSNESS [None]
  - SCREAMING [None]
